FAERS Safety Report 17878167 (Version 3)
Quarter: 2021Q1

REPORT INFORMATION
  Report Type: Spontaneous
  Country: ES (occurrence: ES)
  Receive Date: 20200610
  Receipt Date: 20210301
  Transmission Date: 20210419
  Serious: Yes (Death, Hospitalization, Other)
  Sender: FDA-Public Use
  Company Number: ES-AUROBINDO-AUR-APL-2020-027900

PATIENT
  Age: 33 Year
  Sex: Female

DRUGS (6)
  1. DEXAMETHASONE. [Concomitant]
     Active Substance: DEXAMETHASONE
     Indication: PROPHYLAXIS
     Dosage: UNK, DOSE1:2.5 MG/M2/12H ON DAYS 1?15
     Route: 040
  2. IDARUBICIN [Concomitant]
     Active Substance: IDARUBICIN
     Indication: ACUTE PROMYELOCYTIC LEUKAEMIA
     Dosage: UNK, DOSE1:12 MG/M2 ON DAYS 2, 4, 6 AND 8
     Route: 041
  3. FLUCONAZOLE. [Suspect]
     Active Substance: FLUCONAZOLE
     Indication: ANTIFUNGAL PROPHYLAXIS
     Dosage: UNK
     Route: 065
  4. POSACONAZOLE [Interacting]
     Active Substance: POSACONAZOLE
     Indication: ACUTE PROMYELOCYTIC LEUKAEMIA
     Dosage: UNK, SWITCHED TO AMPHOTERICIN B LIPOSOMAL ON DAY 18 (FROM STARTING TRETINOIN)
     Route: 065
  5. TRETINOIN. [Interacting]
     Active Substance: TRETINOIN
     Indication: ACUTE PROMYELOCYTIC LEUKAEMIA
     Dosage: 45 MILLIGRAM, ORAL TRETINOIN 45 MG/M 2 /DAY IN TWO DIVIDED DOSES
     Route: 048
  6. POSACONAZOLE [Interacting]
     Active Substance: POSACONAZOLE
     Indication: ANTIFUNGAL PROPHYLAXIS

REACTIONS (9)
  - Toxicity to various agents [Fatal]
  - Abdominal pain [Unknown]
  - Diarrhoea [Recovering/Resolving]
  - Septic shock [Fatal]
  - Abdominal distension [Unknown]
  - Multiple organ dysfunction syndrome [Fatal]
  - Hepatotoxicity [Fatal]
  - Gastrointestinal toxicity [Fatal]
  - Drug interaction [Fatal]
